FAERS Safety Report 7407219-6 (Version None)
Quarter: 2011Q2

REPORT INFORMATION
  Report Type: 
  Country: None (occurrence: None)
  Receive Date: 20110411
  Receipt Date: 20110329
  Transmission Date: 20111010
  Serious: Yes (Hospitalization)
  Sender: FDA-Public Use
  Company Number: PHHY2011CA26432

PATIENT
  Sex: Male

DRUGS (1)
  1. ZOMETA [Suspect]
     Dosage: 3 MG, EVERY 4 WEEKS
     Route: 042
     Dates: start: 20110125

REACTIONS (2)
  - BLADDER DISORDER [None]
  - RENAL DISORDER [None]
